FAERS Safety Report 16596672 (Version 2)
Quarter: 2019Q3

REPORT INFORMATION
  Report Type: Spontaneous
  Country: US (occurrence: US)
  Receive Date: 20190719
  Receipt Date: 20190821
  Transmission Date: 20191004
  Serious: No
  Sender: FDA-Public Use
  Company Number: US-ELI_LILLY_AND_COMPANY-US201907010102

PATIENT
  Sex: Female

DRUGS (4)
  1. VICTOZA [Suspect]
     Active Substance: LIRAGLUTIDE
     Indication: PRODUCT USED FOR UNKNOWN INDICATION
     Dosage: UNK UNK, UNKNOWN
     Route: 065
  2. TRULICITY [Suspect]
     Active Substance: DULAGLUTIDE
     Indication: PRODUCT USED FOR UNKNOWN INDICATION
     Dosage: 1.5 MG, UNKNOWN
     Route: 058
  3. TRULICITY [Suspect]
     Active Substance: DULAGLUTIDE
     Dosage: 1.5 MG, UNKNOWN
     Route: 058
  4. TRULICITY [Suspect]
     Active Substance: DULAGLUTIDE
     Dosage: 1.5 MG, UNKNOWN
     Route: 058

REACTIONS (9)
  - Product dose omission [Unknown]
  - Heart rate increased [Unknown]
  - Nausea [Recovered/Resolved]
  - Dehydration [Unknown]
  - Dizziness [Unknown]
  - Injection site pain [Unknown]
  - Sleep disorder due to general medical condition, insomnia type [Unknown]
  - Tremor [Unknown]
  - Feeling jittery [Unknown]

NARRATIVE: CASE EVENT DATE: 20190801
